FAERS Safety Report 17190646 (Version 1)
Quarter: 2019Q4

REPORT INFORMATION
  Report Type: Spontaneous
  Country: US (occurrence: US)
  Receive Date: 20191220
  Receipt Date: 20191220
  Transmission Date: 20200122
  Serious: Yes (Hospitalization)
  Sender: FDA-Public Use
  Company Number: None

PATIENT
  Age: 83 Year
  Sex: Female

DRUGS (9)
  1. GLIPIZIDE ER TAB 2.5MG [Concomitant]
     Dates: start: 20161107
  2. CALCIUM/D TAB 600-400 [Concomitant]
     Dates: start: 20161107
  3. FUROSEMIDE TAB 20MG [Concomitant]
     Dates: start: 20161107
  4. TRAMADOL HCL TAB 50MG [Concomitant]
     Dates: start: 20180724
  5. VERAPAMIL TAB 120MG [Concomitant]
     Dates: start: 20161107
  6. IBRANCE [Suspect]
     Active Substance: PALBOCICLIB
     Indication: PRODUCT USED FOR UNKNOWN INDICATION
     Dosage: ?          OTHER FREQUENCY:1 DAILY DAY 1-21;?
     Route: 048
     Dates: start: 20161108
  7. LYRICA CAP 75MG [Concomitant]
     Dates: start: 20161107
  8. LISINOPRIL TAB 2.5MG [Concomitant]
  9. PANTOPRAZOLE TAB 40MG [Concomitant]
     Dates: start: 20161107

REACTIONS (1)
  - Influenza [None]

NARRATIVE: CASE EVENT DATE: 20191130
